FAERS Safety Report 21546021 (Version 1)
Quarter: 2022Q4

REPORT INFORMATION
  Report Type: Spontaneous
  Country: DE (occurrence: None)
  Receive Date: 20221103
  Receipt Date: 20221103
  Transmission Date: 20230113
  Serious: Yes (Congenital Anomaly, Other)
  Sender: FDA-Public Use
  Company Number: 2022A355090

PATIENT
  Age: 1 Day
  Sex: Female
  Weight: 3.8 kg

DRUGS (5)
  1. SYMBICORT [Suspect]
     Active Substance: BUDESONIDE\FORMOTEROL FUMARATE DIHYDRATE
     Indication: Asthma
     Route: 064
     Dates: start: 20201214, end: 20210918
  2. COMIRNATY MONOVALENT [Concomitant]
     Indication: COVID-19 immunisation
     Dates: start: 20210705, end: 20210705
  3. COMIRNATY MONOVALENT [Concomitant]
     Indication: COVID-19 immunisation
     Dates: start: 20210804, end: 20210804
  4. EUTHYROX [Concomitant]
     Active Substance: LEVOTHYROXINE SODIUM
     Indication: Hypothyroidism
     Dosage: 112 [?G/D (BIS 75) ]
     Dates: start: 20201214, end: 20210918
  5. ASPIRIN [Concomitant]
     Active Substance: ASPIRIN
     Indication: Prophylaxis
     Dosage: 100 [MG/D ]
     Dates: start: 20210201, end: 20210809

REACTIONS (7)
  - Foetal exposure during pregnancy [Unknown]
  - Hypotonia neonatal [Unknown]
  - Left ventricular false tendon [Not Recovered/Not Resolved]
  - Atrial septal defect [Unknown]
  - Neonatal asphyxia [Unknown]
  - Ventricular septal defect [Unknown]
  - Neonatal respiratory arrest [Recovered/Resolved]

NARRATIVE: CASE EVENT DATE: 20210901
